FAERS Safety Report 18467818 (Version 2)
Quarter: 2020Q4

REPORT INFORMATION
  Report Type: Report from Study
  Country: None (occurrence: IT)
  Receive Date: 20201105
  Receipt Date: 20201113
  Transmission Date: 20210114
  Serious: Yes (Death)
  Sender: FDA-Public Use
  Company Number: IT-MELINTA THERAPEUTICS, INC-E2B_00000787

PATIENT
  Age: 50 Year
  Sex: Male

DRUGS (30)
  1. DELTACORTENE [Concomitant]
     Active Substance: PREDNISONE
     Indication: COVID-19 IMMUNISATION
     Route: 042
     Dates: start: 20201019, end: 20201019
  2. ECALTA [Concomitant]
     Active Substance: ANIDULAFUNGIN
     Indication: CANDIDA INFECTION
     Dosage: 200MG (FL 100MG/30ML)
     Route: 042
     Dates: start: 20201024, end: 20201025
  3. FENTANEST [Concomitant]
     Active Substance: FENTANYL CITRATE
     Indication: ANAESTHESIA
     Dosage: 50 UG/H; 1 ML/H; 2500UG 50 ML
     Route: 042
     Dates: start: 20201021, end: 20201025
  4. URBASON [Concomitant]
     Active Substance: METHYLPREDNISOLONE
     Indication: COVID-19 IMMUNISATION
     Route: 042
     Dates: start: 20201019, end: 20201025
  5. FOSFOTRICINA [Concomitant]
     Indication: BACTERAEMIA
     Route: 042
     Dates: start: 20201019, end: 20201025
  6. URSACOL [Concomitant]
     Active Substance: URSODIOL
     Indication: CHOLANGITIS SCLEROSING
  7. LUVION [Concomitant]
     Indication: HYPERTENSION
     Route: 042
     Dates: start: 20200920, end: 20201025
  8. PROPOFOL B BRAUN [Concomitant]
     Active Substance: PROPOFOL
     Indication: ANAESTHESIA
     Dosage: 1.33 MG/KG/H; 99.8 MG/H; 10ML/H
     Route: 042
     Dates: start: 20201021, end: 20201025
  9. CUBICIN [Concomitant]
     Active Substance: DAPTOMYCIN
     Indication: BACTERIAL INFECTION
     Dosage: 850MG (50MLG/100ML)
     Route: 042
     Dates: start: 20201019, end: 20201025
  10. SIMULECT [Concomitant]
     Active Substance: BASILIXIMAB
     Indication: TRANSPLANT REJECTION
     Route: 042
     Dates: start: 20201019, end: 20201019
  11. ROCALTROL [Concomitant]
     Active Substance: CALCITRIOL
     Indication: RENAL FAILURE
     Route: 048
     Dates: start: 20201019, end: 20201025
  12. ROCALTROL [Concomitant]
     Active Substance: CALCITRIOL
     Indication: OSTEOPENIA
  13. VABOREM [Suspect]
     Active Substance: MEROPENEM\VABORBACTAM
     Indication: KLEBSIELLA INFECTION
     Dates: start: 20201001, end: 20201025
  14. ASPIRIN. [Concomitant]
     Active Substance: ASPIRIN
     Indication: THROMBOSIS PROPHYLAXIS
  15. VABOREM [Suspect]
     Active Substance: MEROPENEM\VABORBACTAM
     Indication: SEPTIC SHOCK
  16. FENTANEST [Concomitant]
     Active Substance: FENTANYL CITRATE
     Indication: ANALGESIC THERAPY
  17. TYGACIL [Concomitant]
     Active Substance: TIGECYCLINE
     Indication: INFECTION
     Route: 042
     Dates: start: 20201019, end: 20201020
  18. DEURSIL [Concomitant]
     Active Substance: URSODIOL
     Indication: LITHIASIS
     Route: 048
     Dates: start: 20200920, end: 20201025
  19. DEURSIL [Concomitant]
     Active Substance: URSODIOL
     Indication: CHOLANGITIS SCLEROSING
  20. ANTRA [Concomitant]
     Active Substance: OMEPRAZOLE
     Indication: PROPHYLAXIS
     Route: 042
     Dates: start: 20200920, end: 20201025
  21. PALEXIA [Concomitant]
     Active Substance: TAPENTADOL HYDROCHLORIDE
     Indication: PERIARTHRITIS
     Dosage: NOT PROVIDED.
     Dates: start: 201912
  22. PROGRAF [Concomitant]
     Active Substance: TACROLIMUS
     Indication: COLITIS ULCERATIVE
     Dosage: 1MG; 5MG
     Dates: start: 20200920, end: 20201025
  23. CANCIDAS [Concomitant]
     Active Substance: CASPOFUNGIN ACETATE
     Indication: FUNGAL INFECTION
     Dosage: 50MG (50MG/100ML)
     Route: 042
     Dates: start: 20201019, end: 20201024
  24. MERREM [Concomitant]
     Active Substance: MEROPENEM
     Indication: URINARY TRACT INFECTION
     Route: 042
     Dates: start: 20201019, end: 20201025
  25. KANRENOL [Concomitant]
     Active Substance: CANRENOATE POTASSIUM
     Indication: HYPERTENSION
     Route: 042
     Dates: start: 20200920, end: 20201025
  26. CALCIPARINA [Concomitant]
     Active Substance: HEPARIN CALCIUM
     Indication: THROMBOSIS PROPHYLAXIS
     Route: 058
     Dates: start: 20201020, end: 20201025
  27. URSACOL [Concomitant]
     Active Substance: URSODIOL
     Indication: LITHIASIS
     Route: 048
     Dates: start: 20200920, end: 20201025
  28. CUBICIN [Concomitant]
     Active Substance: DAPTOMYCIN
     Indication: ENDOCARDITIS
  29. ASACOL [Concomitant]
     Active Substance: MESALAMINE
     Indication: COLITIS ULCERATIVE
     Route: 048
     Dates: start: 20201019, end: 20201025
  30. ASPIRIN. [Concomitant]
     Active Substance: ASPIRIN
     Indication: PYREXIA
     Route: 048
     Dates: start: 20200920, end: 20201025

REACTIONS (3)
  - Hepatic encephalopathy [Fatal]
  - Hepatic failure [Fatal]
  - Pancreatitis haemorrhagic [Not Recovered/Not Resolved]

NARRATIVE: CASE EVENT DATE: 20201019
